FAERS Safety Report 6257114-3 (Version None)
Quarter: 2009Q3

REPORT INFORMATION
  Report Type: 
  Country: None (occurrence: None)
  Receive Date: 20090706
  Receipt Date: 20090629
  Transmission Date: 20100115
  Serious: Yes (Life-Threatening, Hospitalization)
  Sender: FDA-Public Use
  Company Number: B0581734A

PATIENT
  Sex: Male
  Weight: 63 kg

DRUGS (5)
  1. PAXIL [Suspect]
     Indication: DRUG USE FOR UNKNOWN INDICATION
     Dosage: 40MG PER DAY
     Route: 048
     Dates: start: 20080920, end: 20090624
  2. AMITRIPTYLINE HCL [Concomitant]
     Dosage: 75MG TWICE PER DAY
     Route: 048
     Dates: start: 20061028, end: 20090629
  3. SOLANAX [Concomitant]
     Dosage: 1.2MG TWICE PER DAY
     Route: 048
     Dates: start: 20080904, end: 20090629
  4. TETRAMIDE [Concomitant]
     Dosage: 30MG PER DAY
     Route: 048
     Dates: start: 20090616, end: 20090629
  5. ROHYPNOL [Concomitant]
     Dosage: 1MG PER DAY
     Route: 048
     Dates: start: 20090625, end: 20090629

REACTIONS (2)
  - AMNESIA [None]
  - SELF INJURIOUS BEHAVIOUR [None]
